FAERS Safety Report 11919040 (Version 3)
Quarter: 2016Q2

REPORT INFORMATION
  Report Type: Spontaneous
  Country: US (occurrence: US)
  Receive Date: 20160115
  Receipt Date: 20160401
  Transmission Date: 20160815
  Serious: No
  Sender: FDA-Public Use
  Company Number: US-JNJFOC-20151220864

PATIENT
  Sex: Female
  Weight: 89.81 kg

DRUGS (1)
  1. XARELTO [Suspect]
     Active Substance: RIVAROXABAN
     Indication: THROMBOSIS PROPHYLAXIS
     Route: 048
     Dates: start: 2015

REACTIONS (5)
  - Faeces discoloured [Unknown]
  - Memory impairment [Unknown]
  - Rash macular [Unknown]
  - Pruritus [Unknown]
  - Acrochordon [Unknown]

NARRATIVE: CASE EVENT DATE: 2015
